FAERS Safety Report 24614212 (Version 7)
Quarter: 2025Q3

REPORT INFORMATION
  Report Type: Report from Study
  Country: US (occurrence: US)
  Receive Date: 20241113
  Receipt Date: 20250922
  Transmission Date: 20251021
  Serious: Yes (Other)
  Sender: UCB
  Company Number: US-UCBSA-2024057829

PATIENT
  Sex: Female
  Weight: 54.4 kg

DRUGS (20)
  1. FINTEPLA [Suspect]
     Active Substance: FENFLURAMINE
     Indication: Seizure
     Dosage: 6 MILLILITER, 2X/DAY (BID)
     Dates: start: 20211202
  2. FINTEPLA [Suspect]
     Active Substance: FENFLURAMINE
     Indication: Severe myoclonic epilepsy of infancy
     Dosage: 2.2 MILLIGRAM, 2X/DAY (BID)
     Route: 048
     Dates: start: 20220210
  3. FINTEPLA [Suspect]
     Active Substance: FENFLURAMINE
     Indication: Autism spectrum disorder
     Dosage: 2.20 MILLIGRAM, 2X/DAY (BID)
     Dates: start: 20220303
  4. FINTEPLA [Suspect]
     Active Substance: FENFLURAMINE
     Dosage: 6 MILLILITER, 2X/DAY (BID)
     Route: 048
     Dates: start: 20220317
  5. FINTEPLA [Suspect]
     Active Substance: FENFLURAMINE
     Dates: start: 20220317
  6. FINTEPLA [Suspect]
     Active Substance: FENFLURAMINE
     Dates: start: 20250722
  7. FINTEPLA [Suspect]
     Active Substance: FENFLURAMINE
     Dates: start: 20250727
  8. VIMPAT [Suspect]
     Active Substance: LACOSAMIDE
     Indication: Product used for unknown indication
     Dosage: 6 MILLILITER, 2X/DAY (BID)
     Dates: start: 20250630
  9. VIMPAT [Suspect]
     Active Substance: LACOSAMIDE
  10. VIMPAT [Suspect]
     Active Substance: LACOSAMIDE
     Dates: end: 20250718
  11. EPIDIOLEX [Concomitant]
     Active Substance: CANNABIDIOL
     Indication: Product used for unknown indication
     Dosage: 200 MILLIGRAM, 2X/DAY (BID)
     Route: 048
  12. DEPAKOTE SPRINKLES [Concomitant]
     Active Substance: DIVALPROEX SODIUM
     Indication: Seizure
     Dosage: 125 MG IN AM AND 250 MG IN PM UNK, 2X/DAY (BID)
     Route: 048
     Dates: start: 2018
  13. DEPAKOTE SPRINKLES [Concomitant]
     Active Substance: DIVALPROEX SODIUM
     Dosage: 250 MILLIGRAM, 2X/DAY (BID)
  14. LEVOCARNITINE [Concomitant]
     Active Substance: LEVOCARNITINE
     Indication: Liver disorder
     Route: 048
  15. LEVOCARNITINE [Concomitant]
     Active Substance: LEVOCARNITINE
     Dosage: 3 MILLILITER, 2X/DAY (BID)
  16. XCOPRI [Concomitant]
     Active Substance: CENOBAMATE
     Indication: Product used for unknown indication
  17. ACETAMINOPHEN [Concomitant]
     Active Substance: ACETAMINOPHEN
     Indication: Pyrexia
     Route: 054
  18. ACETAMINOPHEN [Concomitant]
     Active Substance: ACETAMINOPHEN
     Indication: Pain
  19. AZITHROMYCIN [Concomitant]
     Active Substance: AZITHROMYCIN
     Indication: Product used for unknown indication
     Dosage: 10 MILLILITER, ONCE DAILY (QD)
     Route: 048
  20. AZITHROMYCIN [Concomitant]
     Active Substance: AZITHROMYCIN
     Route: 048

REACTIONS (8)
  - Seizure [Unknown]
  - Autism spectrum disorder [Unknown]
  - Feeling cold [Unknown]
  - Decreased appetite [Recovered/Resolved]
  - Insomnia [Recovered/Resolved]
  - Weight decreased [Recovered/Resolved]
  - Drug ineffective [Unknown]
  - Product use issue [Unknown]

NARRATIVE: CASE EVENT DATE: 20250101
